FAERS Safety Report 20431233 (Version 1)
Quarter: 2022Q1

REPORT INFORMATION
  Report Type: Spontaneous
  Country: US (occurrence: US)
  Receive Date: 20220204
  Receipt Date: 20220204
  Transmission Date: 20220423
  Serious: No
  Sender: FDA-Public Use
  Company Number: US-BAUSCH-BL-2022-002919

PATIENT
  Sex: Male

DRUGS (1)
  1. VITRASE [Suspect]
     Active Substance: HYALURONIDASE, OVINE
     Indication: Fibroma
     Dosage: TWO WEEKS APART AND CONSISTED OF 2 INJECTIONS IN ONE FOOT AND 1 INJECTION
     Route: 065
     Dates: start: 202110

REACTIONS (2)
  - Blood zinc increased [Unknown]
  - Blood copper increased [Unknown]
